FAERS Safety Report 11628336 (Version 1)
Quarter: 2015Q4

REPORT INFORMATION
  Report Type: Spontaneous
  Country: AU (occurrence: AU)
  Receive Date: 20151014
  Receipt Date: 20151014
  Transmission Date: 20160304
  Serious: Yes (Other)
  Sender: FDA-Public Use
  Company Number: AU-MYLANLABS-2015M1034647

PATIENT

DRUGS (6)
  1. CLOZAPINE. [Concomitant]
     Active Substance: CLOZAPINE
     Indication: SCHIZOPHRENIA
     Dosage: 250 MG
     Route: 065
  2. PALIPERIDONE [Suspect]
     Active Substance: PALIPERIDONE
     Dosage: FOLLOWED BY 100 MG ON DAY 8 FOLLOWED BY
     Route: 065
  3. PALIPERIDONE [Suspect]
     Active Substance: PALIPERIDONE
     Indication: SCHIZOPHRENIA
     Dosage: STARTING DOSE OF 150 MG ON DAY 1 FOLLOWED BY
     Route: 065
  4. SODIUM VALPROATE [Concomitant]
     Active Substance: VALPROATE SODIUM
     Indication: SCHIZOPHRENIA
     Dosage: 1000 MG
     Route: 065
  5. PALIPERIDONE [Suspect]
     Active Substance: PALIPERIDONE
     Dosage: FOLLOWED BY LONG ACTING 100 MG ONCE MONTHLY
     Route: 065
  6. ZUCLOPENTHIXOL [Suspect]
     Active Substance: ZUCLOPENTHIXOL
     Indication: SCHIZOPHRENIA
     Dosage: LONG ACTING 400 MG FORTNIGHTLY
     Route: 065

REACTIONS (6)
  - Hyperprolactinaemia [Unknown]
  - Weight increased [Unknown]
  - Akathisia [Recovered/Resolved]
  - Hyperglycaemia [Unknown]
  - Macrocytosis [Unknown]
  - Electrocardiogram QT prolonged [Unknown]
